FAERS Safety Report 16123378 (Version 2)
Quarter: 2019Q2

REPORT INFORMATION
  Report Type: Spontaneous
  Country: US (occurrence: US)
  Receive Date: 20190327
  Receipt Date: 20190401
  Transmission Date: 20190711
  Serious: Yes (Other)
  Sender: FDA-Public Use
  Company Number: US-BRACCO-2019US01453

PATIENT
  Sex: Female

DRUGS (1)
  1. CARDIOGEN-82 [Suspect]
     Active Substance: RUBIDIUM CHLORIDE RB-82
     Indication: DIAGNOSTIC PROCEDURE
     Dosage: UNK, SINGLE
     Dates: start: 20190321, end: 20190321

REACTIONS (2)
  - No adverse event [Unknown]
  - Wrong technique in product usage process [Unknown]

NARRATIVE: CASE EVENT DATE: 20190321
